FAERS Safety Report 9190010 (Version 1)
Quarter: 2013Q1

REPORT INFORMATION
  Report Type: Spontaneous
  Country: US (occurrence: US)
  Receive Date: 20130326
  Receipt Date: 20130326
  Transmission Date: 20140127
  Serious: No
  Sender: FDA-Public Use
  Company Number: US-PFIZER INC-2013096103

PATIENT
  Age: 81 Year
  Sex: Male
  Weight: 77.1 kg

DRUGS (2)
  1. FLECTOR [Suspect]
     Indication: TENDON RUPTURE
     Dosage: UNK
     Dates: start: 201303
  2. FLECTOR [Suspect]
     Indication: PAIN IN EXTREMITY

REACTIONS (1)
  - Abdominal pain upper [Unknown]
